FAERS Safety Report 12201294 (Version 1)
Quarter: 2016Q1

REPORT INFORMATION
  Report Type: Spontaneous
  Country: US (occurrence: US)
  Receive Date: 20160322
  Receipt Date: 20160322
  Transmission Date: 20160526
  Serious: No
  Sender: FDA-Public Use
  Company Number: US-SA-2015SA044959

PATIENT
  Age: 73 Year
  Sex: Female

DRUGS (4)
  1. NASACORT ALLERGY 24HR [Suspect]
     Active Substance: TRIAMCINOLONE ACETONIDE
     Dosage: DAILY DOSE: 2 SPRY/NARE
     Route: 045
     Dates: start: 20150326, end: 20150408
  2. IBUPROFEN. [Concomitant]
     Active Substance: IBUPROFEN
     Route: 065
  3. PRAVASTATIN [Concomitant]
     Active Substance: PRAVASTATIN\PRAVASTATIN SODIUM
     Route: 065
  4. MACRODANTIN [Concomitant]
     Active Substance: NITROFURANTOIN
     Route: 065

REACTIONS (1)
  - Dizziness [Unknown]
